FAERS Safety Report 9035853 (Version 1)
Quarter: 2013Q1

REPORT INFORMATION
  Report Type: Report from Study
  Country: US (occurrence: US)
  Receive Date: 20130129
  Receipt Date: 20130129
  Transmission Date: 20140127
  Serious: No
  Sender: FDA-Public Use
  Company Number: US-ABBOTT-12P-163-0925480-00

PATIENT
  Sex: Male
  Weight: 86.26 kg

DRUGS (3)
  1. HUMIRA 40 MG/0.8 ML PEN [Suspect]
     Indication: RHEUMATOID ARTHRITIS
     Route: 058
     Dates: start: 200908, end: 201201
  2. SULFASALAZINE [Concomitant]
     Indication: RHEUMATOID ARTHRITIS
  3. AMLODIPINE [Concomitant]
     Indication: PRODUCT USED FOR UNKNOWN INDICATION

REACTIONS (4)
  - Psoriasis [Recovering/Resolving]
  - Rash generalised [Recovering/Resolving]
  - Rash erythematous [Recovering/Resolving]
  - Onychomycosis [Recovering/Resolving]
